FAERS Safety Report 9635136 (Version 1)
Quarter: 2013Q4

REPORT INFORMATION
  Report Type: Spontaneous
  Country: PL (occurrence: None)
  Receive Date: 20131017
  Receipt Date: 20131017
  Transmission Date: 20140711
  Serious: Yes (Other)
  Sender: FDA-Public Use
  Company Number: FK201304586

PATIENT
  Age: 16 Year
  Sex: Female
  Weight: 57 kg

DRUGS (2)
  1. CEFUROXIME [Suspect]
     Indication: URINARY TRACT INFECTION
     Dosage: NOT OTHERWISE SPECIFIED
     Route: 042
     Dates: start: 20130608, end: 20130608
  2. PARACETAMOL [Concomitant]

REACTIONS (1)
  - Anaphylactic reaction [None]
